FAERS Safety Report 9310244 (Version 1)
Quarter: 2013Q2

REPORT INFORMATION
  Report Type: Report from Study
  Country: MX (occurrence: MX)
  Receive Date: 20130527
  Receipt Date: 20130527
  Transmission Date: 20140414
  Serious: Yes (Death, Other)
  Sender: FDA-Public Use
  Company Number: PHHY2013MX050905

PATIENT
  Age: 78 Year
  Sex: Female

DRUGS (3)
  1. ONBREZ [Suspect]
     Indication: BRONCHIAL DISORDER
     Dosage: 150 UG, QD
     Dates: start: 20130222, end: 201303
  2. ACLASTA [Suspect]
     Indication: BONE DISORDER
     Dosage: UNK
  3. SPIRIVA [Concomitant]
     Indication: RESPIRATORY DISORDER

REACTIONS (2)
  - Lung disorder [Fatal]
  - Pulmonary fibrosis [Unknown]
